FAERS Safety Report 4270858-8 (Version None)
Quarter: 2004Q1

REPORT INFORMATION
  Report Type: 
  Country: None (occurrence: None)
  Receive Date: 20040113
  Receipt Date: 20040105
  Transmission Date: 20041129
  Serious: Yes (Life-Threatening)
  Sender: FDA-Public Use
  Company Number: 2004193260FR

PATIENT
  Age: 54 Year
  Sex: Male

DRUGS (4)
  1. XANAX [Suspect]
     Indication: DEPRESSION
     Dosage: ORAL
     Route: 048
  2. STILNOX (ZOLPIDEM) [Suspect]
     Dosage: 10MG/DAY
  3. MODOPAR (BENSERAZIDE HYDROCHLORIDE) [Suspect]
     Indication: PARKINSON'S DISEASE
  4. SPASFON (PHLOROGLUCINOL, TRIMETHYLPHLOROGLUCINOL) [Suspect]

REACTIONS (9)
  - ANURIA [None]
  - CIRCULATORY COLLAPSE [None]
  - CYTOLYTIC HEPATITIS [None]
  - DRUG WITHDRAWAL SYNDROME [None]
  - HYPERTHERMIA MALIGNANT [None]
  - LEUKOCYTOSIS [None]
  - OEDEMA PERIPHERAL [None]
  - PLATELET COUNT DECREASED [None]
  - THERAPY NON-RESPONDER [None]
